FAERS Safety Report 26128665 (Version 1)
Quarter: 2025Q4

REPORT INFORMATION
  Report Type: Spontaneous
  Country: US (occurrence: None)
  Receive Date: 20251207
  Receipt Date: 20251207
  Transmission Date: 20260118
  Serious: No
  Sender: CHIESI
  Company Number: US-CHIESI-2025CHF06584

PATIENT

DRUGS (1)
  1. CLEVIPREX [Suspect]
     Active Substance: CLEVIDIPINE
     Indication: Hypertension
     Dosage: UNK
     Route: 065

REACTIONS (1)
  - Blood pressure decreased [Unknown]
